FAERS Safety Report 18337603 (Version 1)
Quarter: 2020Q4

REPORT INFORMATION
  Report Type: Spontaneous
  Country: JP (occurrence: JP)
  Receive Date: 20201002
  Receipt Date: 20201002
  Transmission Date: 20210113
  Serious: Yes (Other)
  Sender: FDA-Public Use
  Company Number: JP-BAUSCH-BL-2020-027621

PATIENT
  Age: 38 Year
  Sex: Male

DRUGS (4)
  1. GENTAMICIN. [Suspect]
     Active Substance: GENTAMICIN
     Indication: STREPTOCOCCAL INFECTION
     Route: 065
  2. OXYGEN. [Concomitant]
     Active Substance: OXYGEN
     Indication: ENDOCARDITIS
     Dosage: NASAL CANNULA OXYGEN
     Route: 045
  3. CEFTRIAXONE. [Concomitant]
     Active Substance: CEFTRIAXONE
     Indication: STREPTOCOCCAL INFECTION
     Dosage: DISCHARGED HOME AFTER ADDITIONAL 3-WEEK ADMINISTRATION
  4. OXYGEN. [Concomitant]
     Active Substance: OXYGEN
     Dosage: NASAL CANNULA OXYGEN
     Route: 045

REACTIONS (1)
  - Nephropathy toxic [Unknown]
